FAERS Safety Report 12194708 (Version 1)
Quarter: 2016Q1

REPORT INFORMATION
  Report Type: Spontaneous
  Country: US (occurrence: None)
  Receive Date: 20160318
  Receipt Date: 20160318
  Transmission Date: 20160526
  Serious: Yes (Other)
  Sender: FDA-Public Use
  Company Number: None

PATIENT
  Age: 52 Year
  Sex: Male

DRUGS (1)
  1. GENVOYA [Suspect]
     Active Substance: COBICISTAT\ELVITEGRAVIR\EMTRICITABINE\TENOFOVIR ALAFENAMIDE FUMARATE
     Indication: HIV INFECTION
     Dosage: 1 TABLET DAILLY ORAL
     Route: 048
     Dates: start: 20160225

REACTIONS (5)
  - Seizure [None]
  - Nausea [None]
  - Dizziness [None]
  - Fall [None]
  - Vomiting [None]

NARRATIVE: CASE EVENT DATE: 20160229
